FAERS Safety Report 24205475 (Version 3)
Quarter: 2024Q3

REPORT INFORMATION
  Report Type: Spontaneous
  Country: US (occurrence: US)
  Receive Date: 20240813
  Receipt Date: 20240822
  Transmission Date: 20241017
  Serious: No
  Sender: PFIZER
  Company Number: US-PFIZER INC-PV202400104083

PATIENT
  Age: 50 Year
  Sex: Female

DRUGS (5)
  1. TUKYSA [Interacting]
     Active Substance: TUCATINIB
     Dosage: 150 MG
  2. LORAZEPAM [Interacting]
     Active Substance: LORAZEPAM
     Dosage: UNK
  3. ELIQUIS [Interacting]
     Active Substance: APIXABAN
     Dosage: UNK
  4. LOPERAMIDE [Interacting]
     Active Substance: LOPERAMIDE
     Dosage: UNK
  5. GRANISETRON [Interacting]
     Active Substance: GRANISETRON
     Dosage: UNK

REACTIONS (1)
  - Drug interaction [Unknown]
